FAERS Safety Report 10327274 (Version 1)
Quarter: 2014Q3

REPORT INFORMATION
  Report Type: Spontaneous
  Country: US (occurrence: US)
  Receive Date: 20140721
  Receipt Date: 20140721
  Transmission Date: 20150326
  Serious: Yes (Other)
  Sender: FDA-Public Use
  Company Number: US-AMGEN INC.-USASP2014053827

PATIENT
  Age: 68 Year
  Sex: Male

DRUGS (2)
  1. ENBREL [Suspect]
     Active Substance: ETANERCEPT
     Indication: PSORIASIS
     Dosage: UNK UNK, QWK
     Route: 065
     Dates: start: 20120620, end: 2013
  2. METHOTREXATE [Concomitant]
     Active Substance: METHOTREXATE
     Dosage: 25 MG, QWK
     Dates: start: 201405

REACTIONS (3)
  - Skin haemorrhage [Not Recovered/Not Resolved]
  - Psoriasis [Not Recovered/Not Resolved]
  - Skin ulcer [Not Recovered/Not Resolved]
